FAERS Safety Report 7142033-0 (Version None)
Quarter: 2010Q4

REPORT INFORMATION
  Report Type: 
  Country: None (occurrence: None)
  Receive Date: 20101207
  Receipt Date: 20101130
  Transmission Date: 20110411
  Serious: Yes (Hospitalization)
  Sender: FDA-Public Use
  Company Number: A0897977A

PATIENT
  Age: 65 Year
  Sex: Female

DRUGS (3)
  1. PAROXETINE [Suspect]
     Indication: DEPRESSION
     Dosage: 20MG UNKNOWN
     Route: 048
  2. ANTIBIOTICS [Suspect]
     Indication: SINUSITIS
  3. BLOOD PRESSURE MEDICATION [Concomitant]

REACTIONS (7)
  - ABDOMINAL PAIN [None]
  - DEHYDRATION [None]
  - FEELING ABNORMAL [None]
  - SINUSITIS [None]
  - TREATMENT NONCOMPLIANCE [None]
  - WEIGHT INCREASED [None]
  - WITHDRAWAL SYNDROME [None]
